FAERS Safety Report 12997212 (Version 3)
Quarter: 2016Q4

REPORT INFORMATION
  Report Type: Spontaneous
  Country: US (occurrence: US)
  Receive Date: 20161205
  Receipt Date: 20161214
  Transmission Date: 20170207
  Serious: Yes (Other)
  Sender: FDA-Public Use
  Company Number: US-TEVA-717543ACC

PATIENT
  Age: 26 Year
  Sex: Female
  Weight: 72.64 kg

DRUGS (1)
  1. PLAN B ONE-STEP [Suspect]
     Active Substance: LEVONORGESTREL
     Indication: POST COITAL CONTRACEPTION
     Dates: start: 20160823, end: 20160823

REACTIONS (4)
  - Menstruation irregular [Recovered/Resolved]
  - Menstruation delayed [Not Recovered/Not Resolved]
  - Exposure during pregnancy [Unknown]
  - Pregnancy after post coital contraception [Unknown]

NARRATIVE: CASE EVENT DATE: 20160828
